FAERS Safety Report 18668914 (Version 1)
Quarter: 2020Q4

REPORT INFORMATION
  Report Type: Spontaneous
  Country: US (occurrence: US)
  Receive Date: 20201227
  Receipt Date: 20201227
  Transmission Date: 20210114
  Serious: No
  Sender: FDA-Public Use
  Company Number: None

PATIENT
  Age: 60 Year
  Sex: Female
  Weight: 89.1 kg

DRUGS (11)
  1. EMGALITY [Suspect]
     Active Substance: GALCANEZUMAB-GNLM
     Indication: MIGRAINE
     Dosage: ?          QUANTITY:2 INJECTION(S);?
  2. OXYBUTYNIN. [Concomitant]
     Active Substance: OXYBUTYNIN CHLORIDE
  3. BENADRYL [Concomitant]
     Active Substance: DIPHENHYDRAMINE HYDROCHLORIDE
  4. ALENDRONATE [Concomitant]
     Active Substance: ALENDRONATE SODIUM
  5. ARMOUR THYROID [Concomitant]
     Active Substance: THYROID, PORCINE
  6. LISINOPRIL. [Concomitant]
     Active Substance: LISINOPRIL
  7. SUMATRIPTAN. [Concomitant]
     Active Substance: SUMATRIPTAN
  8. MONTELUKAST [Concomitant]
     Active Substance: MONTELUKAST SODIUM
  9. FLUTICASONE NASAL [Concomitant]
     Active Substance: FLUTICASONE
  10. ROSUVASTATIN. [Concomitant]
     Active Substance: ROSUVASTATIN
  11. AZELSSTIN NASAL [Concomitant]

REACTIONS (5)
  - Back pain [None]
  - Injection site pain [None]
  - Bowel movement irregularity [None]
  - Peripheral swelling [None]
  - Pruritus [None]

NARRATIVE: CASE EVENT DATE: 20201227
